FAERS Safety Report 12539291 (Version 1)
Quarter: 2016Q3

REPORT INFORMATION
  Report Type: Spontaneous
  Country: US (occurrence: None)
  Receive Date: 20160707
  Receipt Date: 20160707
  Transmission Date: 20161109
  Serious: No
  Sender: FDA-Public Use
  Company Number: None

PATIENT
  Age: 64 Year
  Sex: Female
  Weight: 72.12 kg

DRUGS (8)
  1. VITAMIN B12 [Concomitant]
     Active Substance: CYANOCOBALAMIN
  2. VITAMIN D3 [Concomitant]
     Active Substance: CHOLECALCIFEROL
  3. NORTRIPTYLINE [Concomitant]
     Active Substance: NORTRIPTYLINE
  4. ESOMEPRAZOLE NAGNESIUM DELAYED-RELEASE CAPSULES, USP 40MG MYLAN [Suspect]
     Active Substance: ESOMEPRAZOLE MAGNESIUM
     Indication: BARRETT^S OESOPHAGUS
     Dosage: 40MG 1 CAPSULE EVERY MORNING MOUTH
     Route: 048
     Dates: end: 20160530
  5. ASPIRIN. [Concomitant]
     Active Substance: ASPIRIN
  6. ESOMEPRAZOLE NAGNESIUM DELAYED-RELEASE CAPSULES, USP 40MG MYLAN [Suspect]
     Active Substance: ESOMEPRAZOLE MAGNESIUM
     Indication: GASTROOESOPHAGEAL REFLUX DISEASE
     Dosage: 40MG 1 CAPSULE EVERY MORNING MOUTH
     Route: 048
     Dates: end: 20160530
  7. PROPRANALOL [Concomitant]
  8. MULTI-VITAMIN [Concomitant]
     Active Substance: .ALPHA.-TOCOPHEROL ACETATE, DL-\ASCORBIC ACID\CYANOCOBALAMIN\FLUORIDE ION\FOLIC ACID\NIACIN\PYRIDOXINE\RIBOFLAVIN\THIAMINE\VITAMIN A\VITAMIN D

REACTIONS (3)
  - Nausea [None]
  - Product substitution issue [None]
  - Dyspepsia [None]

NARRATIVE: CASE EVENT DATE: 20160501
